FAERS Safety Report 9784116 (Version 5)
Quarter: 2014Q2

REPORT INFORMATION
  Report Type: Report from Study
  Country: CA (occurrence: CA)
  Receive Date: 20131226
  Receipt Date: 20140521
  Transmission Date: 20141212
  Serious: Yes (Hospitalization)
  Sender: FDA-Public Use
  Company Number: CA-BAYER-2013-154697

PATIENT
  Age: 62 Year
  Sex: Male
  Weight: 96 kg

DRUGS (17)
  1. REGORAFENIB [Suspect]
     Indication: LUNG NEOPLASM MALIGNANT
     Dosage: 160 MG, ONCE (SINGLE DOSE)
     Route: 048
     Dates: start: 20131118, end: 20131118
  2. REGORAFENIB [Suspect]
     Indication: LUNG NEOPLASM MALIGNANT
     Dosage: 160MG DAILY
     Route: 048
     Dates: start: 20131125, end: 20131212
  3. REGORAFENIB [Suspect]
     Indication: LUNG NEOPLASM MALIGNANT
     Dosage: DAILY DOSE 120 MG
     Route: 048
     Dates: start: 20140101
  4. REGORAFENIB [Suspect]
     Indication: LUNG NEOPLASM MALIGNANT
     Dosage: 120MG X 3 WEEKS
     Route: 048
     Dates: start: 20140326, end: 20140404
  5. REGORAFENIB [Suspect]
     Indication: LUNG NEOPLASM MALIGNANT
     Dosage: 120 MG, QD
     Route: 048
     Dates: start: 20140410, end: 20140415
  6. REGORAFENIB [Suspect]
     Indication: LUNG NEOPLASM MALIGNANT
     Dosage: 120 MG, QD
     Route: 048
     Dates: start: 20140422
  7. LIPITOR [Concomitant]
     Indication: HYPERLIPIDAEMIA
     Dosage: 20 MG, QD
     Route: 048
     Dates: start: 2006
  8. TYLENOL WITH CODEINE [Concomitant]
     Indication: HEADACHE
     Dosage: 1 TAB, PRN
     Route: 048
     Dates: start: 20131121, end: 20131217
  9. TYLENOL WITH CODEINE [Concomitant]
     Indication: HEADACHE
     Dosage: 2 TABS, PRN
     Route: 048
     Dates: start: 20131218
  10. COVERSYL [Concomitant]
     Indication: HYPERTENSION
     Dosage: 4 MG, QD
     Route: 048
     Dates: start: 20131125
  11. ATIVAN [Concomitant]
     Indication: ANXIETY
     Dosage: 1 MG, PRN
     Route: 060
     Dates: start: 20131202
  12. TYLENOL ES [Concomitant]
     Indication: HEADACHE
     Dosage: 500 MG, PRN
     Route: 048
     Dates: start: 20131201, end: 20131209
  13. TYLENOL ES [Concomitant]
     Indication: HEADACHE
     Dosage: 500 MG, PRN
     Route: 048
     Dates: start: 20131224
  14. LOSEC [Concomitant]
     Indication: GASTROINTESTINAL PAIN
     Dosage: 20 MG, QD
     Route: 048
     Dates: start: 20131209, end: 20131214
  15. IMOVANE [Concomitant]
     Indication: INSOMNIA
     Dosage: 7.5 MG, QHS PRN
     Route: 048
     Dates: start: 20131230
  16. ESCITALOPRAM [Concomitant]
     Indication: ANXIETY
     Dosage: 10MG, QD
     Route: 048
     Dates: start: 20140211
  17. AMLODIPIN [Concomitant]
     Indication: HYPERTENSION
     Dosage: 5MG, QD
     Route: 048
     Dates: start: 20140405

REACTIONS (2)
  - Pancreatitis [Recovered/Resolved]
  - Pancreatitis [Recovered/Resolved]
